FAERS Safety Report 9539179 (Version 1)
Quarter: 2013Q2

REPORT INFORMATION
  Report Type: Spontaneous
  Country: US (occurrence: None)
  Receive Date: 20130517
  Receipt Date: 20130517
  Transmission Date: 20140414
  Serious: No
  Sender: FDA-Public Use
  Company Number: 1000044569

PATIENT
  Sex: Female

DRUGS (1)
  1. VIIBRYD [Suspect]

REACTIONS (2)
  - Daydreaming [None]
  - Disturbance in attention [None]
